FAERS Safety Report 7433884-3 (Version None)
Quarter: 2011Q2

REPORT INFORMATION
  Report Type: 
  Country: None (occurrence: None)
  Receive Date: 20110420
  Receipt Date: 20110420
  Transmission Date: 20111010
  Serious: Yes (Other)
  Sender: FDA-Public Use
  Company Number: None

PATIENT
  Age: 40 Year
  Sex: Male
  Weight: 97.5234 kg

DRUGS (2)
  1. CITALOPRAM HYDROBROMIDE [Suspect]
     Indication: DEPRESSION
     Dosage: 1/2 TABLET 6AM QD PO
     Route: 048
     Dates: start: 20110301, end: 20110419
  2. CITALOPRAM HYDROBROMIDE [Suspect]
     Indication: ANXIETY
     Dosage: 1/2 TABLET 6AM QD PO
     Route: 048
     Dates: start: 20110301, end: 20110419

REACTIONS (2)
  - ABNORMAL DREAMS [None]
  - PRODUCT QUALITY ISSUE [None]
